FAERS Safety Report 8462987-X (Version None)
Quarter: 2012Q2

REPORT INFORMATION
  Report Type: 
  Country: None (occurrence: None)
  Receive Date: 20120625
  Receipt Date: 20120615
  Transmission Date: 20120825
  Serious: Yes (Hospitalization)
  Sender: FDA-Public Use
  Company Number: US-GLAXOSMITHKLINE-A0982180A

PATIENT
  Age: 28 Year
  Sex: Male

DRUGS (3)
  1. EPOPROSTENOL SODIUM [Concomitant]
  2. LETAIRIS [Suspect]
     Indication: PULMONARY HYPERTENSION
     Dosage: 10MG UNKNOWN
     Route: 048
     Dates: start: 20111129
  3. FLOLAN [Suspect]
     Route: 065

REACTIONS (6)
  - PAIN IN JAW [None]
  - OEDEMA PERIPHERAL [None]
  - HEADACHE [None]
  - HOSPITALISATION [None]
  - PAIN [None]
  - FLUSHING [None]
